FAERS Safety Report 19833295 (Version 2)
Quarter: 2021Q3

REPORT INFORMATION
  Report Type: Spontaneous
  Country: MX (occurrence: MX)
  Receive Date: 20210914
  Receipt Date: 20210914
  Transmission Date: 20211014
  Serious: Yes (Hospitalization)
  Sender: FDA-Public Use
  Company Number: MX-ASTRAZENECA-2021A721464

PATIENT
  Age: 2 Year
  Sex: Female
  Weight: 7.8 kg

DRUGS (4)
  1. ESOMEPRAZOL [Suspect]
     Active Substance: ESOMEPRAZOLE
     Indication: GASTROINTESTINAL DISORDER
     Route: 048
     Dates: start: 20210808
  2. ZOLGENSMA [Concomitant]
     Active Substance: ONASEMNOGENE ABEPARVOVEC-XIOI
     Indication: SPINAL MUSCULAR ATROPHY
     Dosage: 44.0ML ONCE/SINGLE ADMINISTRATION
     Route: 042
     Dates: start: 20210806, end: 20210806
  3. METICORTELONE [Concomitant]
     Active Substance: PREDNISOLONE ACETATE
     Dates: start: 20210805
  4. PREDNISOLONE. [Suspect]
     Active Substance: PREDNISOLONE
     Route: 048
     Dates: start: 20210805

REACTIONS (3)
  - Vomiting [Recovered/Resolved]
  - Troponin increased [Recovered/Resolved]
  - Drug intolerance [Unknown]

NARRATIVE: CASE EVENT DATE: 20210809
